FAERS Safety Report 10026838 (Version 3)
Quarter: 2014Q2

REPORT INFORMATION
  Report Type: Spontaneous
  Country: US (occurrence: US)
  Receive Date: 20140321
  Receipt Date: 20140422
  Transmission Date: 20141212
  Serious: No
  Sender: FDA-Public Use
  Company Number: US-009507513-1403USA009595

PATIENT
  Age: 68 Year
  Sex: Female
  Weight: 97.51 kg

DRUGS (8)
  1. JANUMET [Suspect]
     Indication: DIABETES MELLITUS
     Dosage: 50/1000 MG TWICE A DAY (100/2000MG)
     Route: 048
     Dates: start: 20131203
  2. ATENOLOL [Concomitant]
     Dosage: 100 MG,ONCE A DAY
  3. GLYBURIDE [Concomitant]
     Dosage: 5 MG, TWICE A DAY
  4. VERAPAMIL [Concomitant]
     Dosage: 120 MG, TWICE A DAY
  5. ALLOPURINOL [Concomitant]
     Dosage: 300 MG, ONCE A DAY
  6. ATORVASTATIN [Concomitant]
     Dosage: 20 MG, ONCE A DAY
  7. PRINIVIL [Concomitant]
     Dosage: 20 MG, TWICE A DAY
     Route: 048
  8. FUROSEMIDE [Concomitant]
     Dosage: ONCE A DAY
     Route: 048

REACTIONS (1)
  - Diarrhoea [Recovered/Resolved]
